FAERS Safety Report 15476151 (Version 1)
Quarter: 2018Q4

REPORT INFORMATION
  Report Type: Spontaneous
  Country: JP (occurrence: JP)
  Receive Date: 20181009
  Receipt Date: 20181009
  Transmission Date: 20190205
  Serious: Yes (Hospitalization)
  Sender: FDA-Public Use
  Company Number: PHJP2018JP006963

PATIENT
  Age: 8 Year
  Sex: Male

DRUGS (3)
  1. OLMETEC [Concomitant]
     Active Substance: OLMESARTAN MEDOXOMIL
     Indication: PRODUCT USED FOR UNKNOWN INDICATION
     Dosage: 10 MG, UNK
     Route: 065
     Dates: start: 20170419
  2. MIZORIBINE [Concomitant]
     Active Substance: MIZORIBINE
     Indication: PRODUCT USED FOR UNKNOWN INDICATION
     Dosage: 300 MG, QOD
     Route: 065
     Dates: start: 20170419
  3. NEORAL [Suspect]
     Active Substance: CYCLOSPORINE
     Indication: HENOCH-SCHONLEIN PURPURA NEPHRITIS
     Dosage: 50 MG, UNK
     Route: 048
     Dates: start: 20170506, end: 20170509

REACTIONS (9)
  - Altered state of consciousness [Unknown]
  - Gaze palsy [Unknown]
  - Posterior reversible encephalopathy syndrome [Unknown]
  - Hyporesponsive to stimuli [Recovering/Resolving]
  - Product use in unapproved indication [Unknown]
  - Cerebral disorder [Recovered/Resolved]
  - Hypertension [Unknown]
  - Clonic convulsion [Unknown]
  - Headache [Unknown]

NARRATIVE: CASE EVENT DATE: 20170506
